FAERS Safety Report 9239236 (Version 2)
Quarter: 2013Q2

REPORT INFORMATION
  Report Type: Report from Study
  Country: US (occurrence: US)
  Receive Date: 20130418
  Receipt Date: 20130516
  Transmission Date: 20140414
  Serious: Yes (Hospitalization)
  Sender: FDA-Public Use
  Company Number: US-ACTELION-A-NJ2013-81920

PATIENT
  Age: 35 Year
  Sex: Male

DRUGS (2)
  1. VELETRI [Suspect]
     Indication: PULMONARY ARTERIAL HYPERTENSION
     Dosage: 12.75 NG/KG, PER MIN
     Route: 041
     Dates: start: 20110216
  2. COUMADIN [Concomitant]

REACTIONS (1)
  - Arrhythmia [Unknown]
